FAERS Safety Report 6483899-7 (Version None)
Quarter: 2009Q4

REPORT INFORMATION
  Report Type: 
  Country: None (occurrence: None)
  Receive Date: 20091208
  Receipt Date: 20091208
  Transmission Date: 20100525
  Serious: No
  Sender: FDA-Public Use
  Company Number: None

PATIENT
  Age: 31 Year
  Sex: Female
  Weight: 68.4932 kg

DRUGS (1)
  1. DEPO-PROVERA [Suspect]
     Indication: CONTRACEPTION
     Dosage: 150 MGM Q 12 WK IM LEFT DEL
     Route: 030

REACTIONS (4)
  - DRUG EXPOSURE DURING PREGNANCY [None]
  - PELVIC DISCOMFORT [None]
  - PREGNANCY TEST POSITIVE [None]
  - PREGNANCY WITH INJECTABLE CONTRACEPTIVE [None]
